FAERS Safety Report 9991980 (Version 1)
Quarter: 2014Q1

REPORT INFORMATION
  Report Type: Spontaneous
  Country: TR (occurrence: TR)
  Receive Date: 20140310
  Receipt Date: 20140310
  Transmission Date: 20141002
  Serious: Yes (Other)
  Sender: FDA-Public Use
  Company Number: TR-VERTEX PHARMACEUTICALS INC-2014-001154

PATIENT
  Sex: 0

DRUGS (3)
  1. INCIVO [Suspect]
     Indication: CHRONIC HEPATITIS C
     Route: 048
  2. PEG-INTERFERON [Suspect]
     Indication: CHRONIC HEPATITIS C
     Dosage: UNK
     Route: 065
  3. RIBAVIRIN [Suspect]
     Indication: CHRONIC HEPATITIS C
     Dosage: UNK
     Route: 065

REACTIONS (6)
  - Leukopenia [Unknown]
  - Neutropenia [Unknown]
  - Anaemia [Unknown]
  - Pyrexia [Unknown]
  - Myalgia [Unknown]
  - Arthralgia [Unknown]
